FAERS Safety Report 12078869 (Version 1)
Quarter: 2016Q1

REPORT INFORMATION
  Report Type: Report from Study
  Country: NO (occurrence: NO)
  Receive Date: 20160216
  Receipt Date: 20160216
  Transmission Date: 20160526
  Serious: Yes (Death, Hospitalization, Disabling)
  Sender: FDA-Public Use
  Company Number: PHHO2010NO02815

PATIENT
  Age: 62 Year
  Sex: Male
  Weight: 70 kg

DRUGS (1)
  1. NEORAL [Suspect]
     Active Substance: CYCLOSPORINE
     Indication: HEART TRANSPLANT
     Dosage: UNK
     Route: 048

REACTIONS (5)
  - Cerebrovascular accident [Fatal]
  - Brain herniation [Fatal]
  - Coma [Fatal]
  - Air embolism [Fatal]
  - Brain oedema [Fatal]

NARRATIVE: CASE EVENT DATE: 20100216
